FAERS Safety Report 9298995 (Version 1)
Quarter: 2013Q2

REPORT INFORMATION
  Report Type: Spontaneous
  Country: US (occurrence: US)
  Receive Date: 20130520
  Receipt Date: 20130520
  Transmission Date: 20140414
  Serious: No
  Sender: FDA-Public Use
  Company Number: US-SANOFI-AVENTIS-2013SA039494

PATIENT
  Age: 45 Year
  Sex: Male

DRUGS (3)
  1. APIDRA [Suspect]
     Indication: TYPE 2 DIABETES MELLITUS
     Dosage: SINCE APIDRA 2.5 MONTHS AGO
  2. LANTUS SOLOSTAR [Suspect]
     Dosage: LANTUS SOLOSTAR PENS SINCE 2 YEARS.
  3. SOLOSTAR [Suspect]

REACTIONS (1)
  - Erectile dysfunction [Not Recovered/Not Resolved]
